FAERS Safety Report 6636259-X (Version None)
Quarter: 2010Q1

REPORT INFORMATION
  Report Type: 
  Country: None (occurrence: None)
  Receive Date: 20100316
  Receipt Date: 20100302
  Transmission Date: 20100710
  Serious: Yes (Hospitalization)
  Sender: FDA-Public Use
  Company Number: ES-CELGENEUS-144-21880-09111364

PATIENT
  Age: 76 Year
  Sex: Male
  Weight: 72 kg

DRUGS (2)
  1. REVLIMID [Suspect]
     Indication: MULTIPLE MYELOMA
     Route: 048
     Dates: start: 20080901, end: 20090623
  2. FORTECORTIN [Suspect]
     Indication: MULTIPLE MYELOMA
     Route: 065
     Dates: start: 20080901, end: 20090623

REACTIONS (2)
  - PLASMACYTOMA [None]
  - PLEURAL EFFUSION [None]
